FAERS Safety Report 7363489-4 (Version None)
Quarter: 2011Q1

REPORT INFORMATION
  Report Type: 
  Country: None (occurrence: None)
  Receive Date: 20110321
  Receipt Date: 20110221
  Transmission Date: 20110831
  Serious: No
  Sender: FDA-Public Use
  Company Number: US-B.I. PHARMACEUTICALS,INC./RIDGEFIELD-2011-BP-06448BP

PATIENT
  Sex: Male

DRUGS (14)
  1. ATACAND [Concomitant]
     Indication: HYPERTENSION
     Dosage: 16 MG
     Route: 048
  2. VITAMIN D [Concomitant]
     Indication: PROPHYLAXIS
     Route: 048
  3. GLUCOSAMINE SULFATE [Concomitant]
     Indication: ARTHRITIS
  4. ASPIRIN [Concomitant]
     Indication: PROPHYLAXIS
     Dosage: 81 MG
     Route: 048
  5. FERROUS GLUCONATE [Concomitant]
     Indication: ANAEMIA
     Dosage: 240 MG
     Route: 048
  6. LOVASTATIN [Concomitant]
     Indication: BLOOD CHOLESTEROL INCREASED
     Dosage: 40 MG
     Route: 048
  7. LASIX [Concomitant]
     Indication: DIURETIC THERAPY
     Dosage: 40 MG
     Route: 048
  8. CALCIUM [Concomitant]
     Indication: PROPHYLAXIS
  9. FATTY ACID SUPPLEMENT [Concomitant]
     Indication: PROPHYLAXIS
  10. PRADAXA [Suspect]
     Indication: ATRIAL FIBRILLATION
     Dosage: 300 MG
     Route: 048
     Dates: start: 20110125, end: 20110217
  11. NEXIUM [Concomitant]
     Indication: GASTROOESOPHAGEAL REFLUX DISEASE
     Dosage: 40 MG
     Route: 048
  12. TOPROL-XL [Concomitant]
     Indication: HYPERTENSION
     Dosage: 25 NR
     Route: 048
  13. CHOLESTOFF [Concomitant]
     Indication: BLOOD CHOLESTEROL INCREASED
     Dosage: 1800 MG
     Route: 048
  14. PSYLLIUM HUSK [Concomitant]
     Indication: CONSTIPATION

REACTIONS (9)
  - DIARRHOEA [None]
  - HAEMATOCHEZIA [None]
  - ARTHRALGIA [None]
  - PRURITUS [None]
  - NAUSEA [None]
  - BACK PAIN [None]
  - GAIT DISTURBANCE [None]
  - ABDOMINAL PAIN UPPER [None]
  - DIZZINESS [None]
